FAERS Safety Report 6094147-4 (Version None)
Quarter: 2009Q1

REPORT INFORMATION
  Report Type: 
  Country: None (occurrence: None)
  Receive Date: 20090224
  Receipt Date: 20090224
  Transmission Date: 20090719
  Serious: Yes (Hospitalization)
  Sender: FDA-Public Use
  Company Number: None

PATIENT
  Age: 81 Year
  Sex: Female
  Weight: 77.5651 kg

DRUGS (1)
  1. LEFLUNOMIDE [Suspect]
     Indication: RHEUMATOID ARTHRITIS
     Dosage: 20MG  DAILY PO
     Route: 048
     Dates: start: 20080901, end: 20081201

REACTIONS (6)
  - DYSPNOEA [None]
  - FATIGUE [None]
  - HYPOXIA [None]
  - INTERSTITIAL LUNG DISEASE [None]
  - MALAISE [None]
  - WEIGHT DECREASED [None]
